FAERS Safety Report 5832131-3 (Version None)
Quarter: 2008Q3

REPORT INFORMATION
  Report Type: 
  Country: None (occurrence: None)
  Receive Date: 20080731
  Receipt Date: 20080721
  Transmission Date: 20090109
  Serious: Yes (Death, Hospitalization)
  Sender: FDA-Public Use
  Company Number: 163-21880-08020512

PATIENT
  Age: 80 Year
  Sex: Male

DRUGS (2)
  1. REVLIMID [Suspect]
     Indication: NON-HODGKIN'S LYMPHOMA
     Dosage: 10MG - 25MG, QD, ORAL, 20 MG, X21 DAYS EVERY 28 DAYS, ORAL
     Route: 048
     Dates: start: 20070507, end: 20070701
  2. REVLIMID [Suspect]
     Indication: NON-HODGKIN'S LYMPHOMA
     Dosage: 10MG - 25MG, QD, ORAL, 20 MG, X21 DAYS EVERY 28 DAYS, ORAL
     Route: 048
     Dates: start: 20070827, end: 20071231

REACTIONS (5)
  - DISEASE PROGRESSION [None]
  - FALL [None]
  - HIP FRACTURE [None]
  - RASH [None]
  - RED BLOOD CELL COUNT DECREASED [None]
